FAERS Safety Report 9002315 (Version 1)
Quarter: 2012Q4

REPORT INFORMATION
  Report Type: Spontaneous
  Country: US (occurrence: None)
  Receive Date: 20121204
  Receipt Date: 20121204
  Transmission Date: 20130627
  Serious: Yes (Death)
  Sender: FDA-Public Use
  Company Number: 32745

PATIENT
  Sex: Male

DRUGS (12)
  1. GLASSIA [Suspect]
     Indication: ALPHA-1 ANTI-TRYPSIN DEFICIENCY
     Route: 042
     Dates: start: 20111224, end: 20121022
  2. ADVAIR [Concomitant]
  3. ALBUTEROL [Concomitant]
  4. DIAZEPAM [Concomitant]
  5. EFFEXOR XR [Concomitant]
  6. LISINOPRIL [Concomitant]
  7. LUNESTA [Concomitant]
  8. PREVACID DR [Concomitant]
  9. PROAIR HFA [Concomitant]
  10. SINGULAIR [Concomitant]
  11. SPIRIVA [Concomitant]
  12. OXYGEN [Concomitant]

REACTIONS (1)
  - Death [None]
